FAERS Safety Report 20176454 (Version 2)
Quarter: 2021Q4

REPORT INFORMATION
  Report Type: Report from Study
  Country: US (occurrence: None)
  Receive Date: 20211213
  Receipt Date: 20211221
  Transmission Date: 20220303
  Serious: Yes (Death)
  Sender: FDA-Public Use
  Company Number: US-ROCHE-2977391

PATIENT
  Age: 67 Year
  Sex: Male
  Weight: 81.1 kg

DRUGS (18)
  1. ATEZOLIZUMAB [Suspect]
     Active Substance: ATEZOLIZUMAB
     Indication: Non-small cell lung cancer metastatic
     Route: 042
     Dates: start: 20210726
  2. CABOZANTINIB [Suspect]
     Active Substance: CABOZANTINIB
     Indication: Non-small cell lung cancer metastatic
     Route: 048
     Dates: start: 20210726
  3. BENZONATATE [Concomitant]
     Active Substance: BENZONATATE
     Indication: Cough
     Route: 048
     Dates: start: 20210507
  4. ZYLOPRIM [Concomitant]
     Active Substance: ALLOPURINOL
     Indication: Hyperuricaemia
     Route: 048
     Dates: start: 1991
  5. INDERAL LA [Concomitant]
     Active Substance: PROPRANOLOL HYDROCHLORIDE
     Indication: Tremor
     Route: 048
     Dates: start: 1996
  6. LISINOPRIL [Concomitant]
     Active Substance: LISINOPRIL
     Indication: Hypertension
     Route: 048
     Dates: start: 2013
  7. LIPITOR [Concomitant]
     Active Substance: ATORVASTATIN CALCIUM
     Indication: Blood cholesterol increased
     Route: 048
     Dates: start: 1985
  8. VOLTAREN [Concomitant]
     Active Substance: DICLOFENAC SODIUM
     Indication: Arthritis
     Route: 048
     Dates: start: 2001
  9. PEPCID [Concomitant]
     Active Substance: FAMOTIDINE
     Indication: Arthritis
     Route: 048
     Dates: start: 2001
  10. NEURONTIN [Concomitant]
     Active Substance: GABAPENTIN
     Indication: Arthritis
     Route: 048
     Dates: start: 2001
  11. PROTONIX [Concomitant]
     Active Substance: PANTOPRAZOLE SODIUM
     Indication: Gastrooesophageal reflux disease
     Route: 048
     Dates: start: 2011
  12. ASPIRIN [Concomitant]
     Active Substance: ASPIRIN
     Route: 048
     Dates: start: 2017
  13. IMODIUM [Concomitant]
     Active Substance: LOPERAMIDE HYDROCHLORIDE
     Indication: Diarrhoea
     Route: 048
     Dates: start: 20210920, end: 20211014
  14. COMPAZINE [Concomitant]
     Active Substance: PROCHLORPERAZINE MALEATE
     Indication: Nausea
     Route: 048
     Dates: start: 20210927
  15. COMPAZINE [Concomitant]
     Active Substance: PROCHLORPERAZINE MALEATE
     Indication: Vomiting
  16. MG PLUS PROTEIN [Concomitant]
     Indication: Hypomagnesaemia
     Route: 048
     Dates: start: 20210930
  17. DELTASONE [Concomitant]
     Active Substance: PREDNISONE
     Indication: Liver function test increased
     Route: 048
     Dates: start: 20211011
  18. ROBITUSSIN AC (UNITED STATES) [Concomitant]
     Indication: Cough
     Route: 048
     Dates: start: 20211021

REACTIONS (1)
  - Death [Fatal]

NARRATIVE: CASE EVENT DATE: 20211203
